FAERS Safety Report 17644972 (Version 1)
Quarter: 2020Q2

REPORT INFORMATION
  Report Type: Spontaneous
  Country: US (occurrence: US)
  Receive Date: 20200408
  Receipt Date: 20200408
  Transmission Date: 20200713
  Serious: No
  Sender: FDA-Public Use
  Company Number: None

PATIENT
  Age: 71 Year
  Weight: 49.05 kg

DRUGS (10)
  1. AMLODIPINE, 5MG, ORAL [Concomitant]
  2. LYSINE 500MG, ORAL [Concomitant]
  3. OLANZAPINE 5 MG, ORAL [Concomitant]
  4. VALCYCLOVIR 500MG ,ORAL [Concomitant]
  5. VITAMIN D, 125 MCG, ORAL [Concomitant]
  6. FOLIC ACID 20MG, ORAL [Concomitant]
  7. THALOMID 100MG, ORAL [Concomitant]
     Dates: start: 20200210, end: 20200309
  8. ONDANSETRON 8 MG, ORAL [Concomitant]
  9. XPOVIO [Suspect]
     Active Substance: SELINEXOR
     Indication: PLASMA CELL MYELOMA
     Dosage: ?          OTHER FREQUENCY:EVERY WEEK;?
     Route: 048
     Dates: start: 20200210, end: 20200408
  10. DEXAMETHASONE ORAL [Concomitant]
     Active Substance: DEXAMETHASONE

REACTIONS (4)
  - Cough [None]
  - Infection [None]
  - Pyrexia [None]
  - Dyspnoea [None]

NARRATIVE: CASE EVENT DATE: 20200408
